FAERS Safety Report 5402062-1 (Version None)
Quarter: 2007Q3

REPORT INFORMATION
  Report Type: 
  Country: None (occurrence: None)
  Receive Date: 20070727
  Receipt Date: 20070717
  Transmission Date: 20080115
  Serious: Yes (Hospitalization)
  Sender: FDA-Public Use
  Company Number: 39222

PATIENT
  Age: 50 Year
  Sex: Male

DRUGS (2)
  1. TERBUTALINE SULFATE [Suspect]
     Indication: ASTHMA
     Dosage: 5MG/NEBULISED
  2. TERBUTALINE SULFATE [Suspect]
     Indication: CONDITION AGGRAVATED
     Dosage: 5MG/NEBULISED

REACTIONS (2)
  - LACTIC ACIDOSIS [None]
  - RESPIRATORY RATE INCREASED [None]
